FAERS Safety Report 9886034 (Version 1)
Quarter: 2014Q1

REPORT INFORMATION
  Report Type: Spontaneous
  Country: US (occurrence: None)
  Receive Date: 20140207
  Receipt Date: 20140207
  Transmission Date: 20141002
  Serious: Yes (Hospitalization)
  Sender: FDA-Public Use
  Company Number: None

PATIENT
  Age: 57 Year
  Sex: Male

DRUGS (1)
  1. MYCOPHENOLATE [Suspect]
     Dosage: TAKE 2 TABLETS IN THE MORNING AND 2 TABLETS IN THE EVENING
     Dates: start: 20131212, end: 20140106

REACTIONS (3)
  - Blood pressure increased [None]
  - Chest pain [None]
  - Confusional state [None]
